FAERS Safety Report 18216950 (Version 3)
Quarter: 2021Q1

REPORT INFORMATION
  Report Type: Report from Study
  Country: JP (occurrence: JP)
  Receive Date: 20200901
  Receipt Date: 20210115
  Transmission Date: 20210419
  Serious: Yes (Hospitalization, Other)
  Sender: FDA-Public Use
  Company Number: JP-BRISTOL-MYERS SQUIBB COMPANY-BMS-2020-060042

PATIENT
  Age: 66 Year
  Sex: Male
  Weight: 66.1 kg

DRUGS (1)
  1. NIVOLUMAB [Suspect]
     Active Substance: NIVOLUMAB
     Indication: MALIGNANT MELANOMA
     Dosage: UNK, Q2WK
     Route: 041

REACTIONS (2)
  - Hypothalamo-pituitary disorder [Unknown]
  - Adrenocorticotropic hormone deficiency [Unknown]
